FAERS Safety Report 9524772 (Version 1)
Quarter: 2013Q3

REPORT INFORMATION
  Report Type: Spontaneous
  Country: US (occurrence: None)
  Receive Date: 20130912
  Receipt Date: 20130912
  Transmission Date: 20140515
  Serious: No
  Sender: FDA-Public Use
  Company Number: None

PATIENT
  Age: 40 Year
  Sex: Female
  Weight: 56.7 kg

DRUGS (2)
  1. MONTELUKAST [Suspect]
     Indication: HYPERSENSITIVITY
     Dosage: 1 PILL AT BEDTIME ONCE DAILY TAKEN BY MOUTH
     Dates: start: 20130902, end: 20130911
  2. MONTELUKAST [Suspect]
     Indication: ASTHMA
     Dosage: 1 PILL AT BEDTIME ONCE DAILY TAKEN BY MOUTH
     Dates: start: 20130902, end: 20130911

REACTIONS (3)
  - Product substitution issue [None]
  - Therapeutic response unexpected with drug substitution [None]
  - Drug effect decreased [None]
